FAERS Safety Report 21300231 (Version 1)
Quarter: 2022Q3

REPORT INFORMATION
  Report Type: Other
  Country: US (occurrence: None)
  Receive Date: 20220906
  Receipt Date: 20220906
  Transmission Date: 20221027
  Serious: Yes (Other)
  Sender: FDA-Public Use
  Company Number: US-Saptalis Pharmaceuticals,LLC-000297

PATIENT
  Age: 34 Year
  Sex: Male

DRUGS (1)
  1. TRIAMCINOLONE [Suspect]
     Active Substance: TRIAMCINOLONE
     Indication: Functional endoscopic sinus surgery
     Route: 045

REACTIONS (3)
  - Blindness [Not Recovered/Not Resolved]
  - Retinal deposits [Unknown]
  - Retinal artery embolism [Unknown]
